FAERS Safety Report 8502191-X (Version None)
Quarter: 2012Q3

REPORT INFORMATION
  Report Type: 
  Country: None (occurrence: None)
  Receive Date: 20120711
  Receipt Date: 20120705
  Transmission Date: 20120928
  Serious: Yes (Other)
  Sender: FDA-Public Use
  Company Number: US-AMGEN-USASP2011048488

PATIENT
  Age: 66 Year
  Sex: Female

DRUGS (3)
  1. METHOTREXATE [Concomitant]
     Dosage: UNK
     Dates: start: 20080901
  2. ENBREL [Suspect]
     Indication: RHEUMATOID ARTHRITIS
     Dosage: 50 MG, QWK
     Dates: start: 20120621
  3. ENBREL [Suspect]
     Dosage: 50 MG, QWK
     Dates: start: 20080901, end: 20120501

REACTIONS (5)
  - ADVERSE EVENT [None]
  - BLOOD GLUCOSE INCREASED [None]
  - TOOTH LOSS [None]
  - FATIGUE [None]
  - TREMOR [None]
